FAERS Safety Report 13340507 (Version 2)
Quarter: 2017Q3

REPORT INFORMATION
  Report Type: Report from Study
  Country: JP (occurrence: JP)
  Receive Date: 20170316
  Receipt Date: 20170823
  Transmission Date: 20171127
  Serious: Yes (Death, Other)
  Sender: FDA-Public Use
  Company Number: JP-ACCORD-049037

PATIENT
  Age: 43 Day
  Sex: Female
  Weight: 4.4 kg

DRUGS (1)
  1. TACROLIMUS. [Suspect]
     Active Substance: TACROLIMUS
     Indication: IMMUNOSUPPRESSANT DRUG THERAPY

REACTIONS (4)
  - Diaphragmatic hernia [Recovered/Resolved]
  - Respiratory failure [Fatal]
  - Seizure [Unknown]
  - Respiratory syncytial virus infection [Fatal]
